FAERS Safety Report 21140091 (Version 2)
Quarter: 2022Q3

REPORT INFORMATION
  Report Type: Report from Study
  Country: US (occurrence: US)
  Receive Date: 20220728
  Receipt Date: 20220903
  Transmission Date: 20221027
  Serious: Yes (Hospitalization, Disabling)
  Sender: FDA-Public Use
  Company Number: US-NOVARTISPH-NVSC2022US167534

PATIENT
  Sex: Female

DRUGS (1)
  1. ENTRESTO [Suspect]
     Active Substance: SACUBITRIL\VALSARTAN
     Indication: Product used for unknown indication
     Dosage: 1 DOSAGE FORM, BID, (24/26MG)
     Route: 065

REACTIONS (7)
  - Sepsis [Unknown]
  - Lung neoplasm malignant [Unknown]
  - Poor peripheral circulation [Unknown]
  - Wound [Unknown]
  - Iliac artery occlusion [Unknown]
  - Memory impairment [Unknown]
  - Pain [Unknown]
